FAERS Safety Report 8273754-4 (Version None)
Quarter: 2012Q2

REPORT INFORMATION
  Report Type: 
  Country: None (occurrence: None)
  Receive Date: 20120411
  Receipt Date: 20120403
  Transmission Date: 20120825
  Serious: Yes (Hospitalization, Other)
  Sender: FDA-Public Use
  Company Number: US-BAYER-2012-033453

PATIENT
  Age: 30 Year
  Sex: Female
  Weight: 97.959 kg

DRUGS (9)
  1. HYDROCODONE BITARTRATE AND ACETAMINOPHEN [Concomitant]
     Dosage: UNK
     Dates: start: 20070702
  2. LORAZEPAM [Concomitant]
     Dosage: 2 MG, UNK
     Dates: start: 20070916
  3. CLINDAMYCIN HCL [Concomitant]
     Dosage: UNK
     Dates: start: 20070702
  4. PROTONIX [Concomitant]
     Dosage: 20 MG, UNK
     Dates: start: 20070611
  5. YASMIN [Suspect]
  6. NEXIUM [Concomitant]
     Dosage: 40 MG EVERY OTHER DAY
     Dates: start: 20070916
  7. METHADONE HCL [Concomitant]
     Dosage: 140 MG, DAILY
     Dates: start: 20070916
  8. DILANTIN [Concomitant]
     Dosage: 300 MG, UNK
     Dates: start: 20070916
  9. PLAVIX [Concomitant]

REACTIONS (2)
  - DEEP VEIN THROMBOSIS [None]
  - CEREBROVASCULAR ACCIDENT [None]
